FAERS Safety Report 13254684 (Version 1)
Quarter: 2017Q1

REPORT INFORMATION
  Report Type: Spontaneous
  Country: GB (occurrence: GB)
  Receive Date: 20170221
  Receipt Date: 20170221
  Transmission Date: 20170428
  Serious: Yes (Other)
  Sender: FDA-Public Use
  Company Number: GB-ORION CORPORATION ORION PHARMA-TREX2017-0569

PATIENT
  Age: 58 Year
  Sex: Female

DRUGS (2)
  1. FEMOSTON-CONTI [Concomitant]
     Active Substance: DYDROGESTERONE\ESTRADIOL
     Indication: MENOPAUSE
     Route: 065
  2. METHOTREXATE (TRADE NAME UNKNOWN) [Suspect]
     Active Substance: METHOTREXATE
     Route: 065

REACTIONS (5)
  - Fatigue [Recovered/Resolved]
  - Liver function test abnormal [Recovered/Resolved]
  - Arthralgia [Recovered/Resolved]
  - Depression [Recovered/Resolved]
  - Myalgia [Recovered/Resolved]
